FAERS Safety Report 11513222 (Version 1)
Quarter: 2015Q3

REPORT INFORMATION
  Report Type: Spontaneous
  Country: US (occurrence: US)
  Receive Date: 20150916
  Receipt Date: 20150916
  Transmission Date: 20151125
  Serious: No
  Sender: FDA-Public Use
  Company Number: US-PERRIGO-14US010601

PATIENT
  Sex: Male
  Weight: 72.56 kg

DRUGS (2)
  1. IMIQUIMOD 5% 2H1 [Suspect]
     Active Substance: IMIQUIMOD
     Indication: BASAL CELL CARCINOMA
     Dosage: UNKNOWN, UNKNOWN
     Route: 061
     Dates: start: 2013, end: 2013
  2. IMIQUIMOD 5% 2H1 [Suspect]
     Active Substance: IMIQUIMOD
     Dosage: 1 THIN APPLICATION, QD AT BEDTIME
     Route: 061
     Dates: start: 201312, end: 201402

REACTIONS (4)
  - Incorrect drug administration duration [Recovered/Resolved]
  - Drug effect decreased [Unknown]
  - Inappropriate schedule of drug administration [Recovered/Resolved]
  - Application site erythema [Recovered/Resolved]

NARRATIVE: CASE EVENT DATE: 2013
